FAERS Safety Report 7395096-1 (Version None)
Quarter: 2011Q2

REPORT INFORMATION
  Report Type: 
  Country: None (occurrence: None)
  Receive Date: 20110405
  Receipt Date: 20110329
  Transmission Date: 20111010
  Serious: Yes (Death)
  Sender: FDA-Public Use
  Company Number: JP-GILEAD-E2B_00001179

PATIENT
  Age: 60 Year
  Sex: Female

DRUGS (4)
  1. REVATIO [Concomitant]
  2. AMBRISENTAN [Suspect]
     Route: 048
     Dates: start: 20110307, end: 20110310
  3. BERAPROST SODIUM [Concomitant]
  4. AMBRISENTAN [Suspect]
     Indication: PULMONARY HYPERTENSION
     Route: 048
     Dates: start: 20110311, end: 20110327

REACTIONS (3)
  - INTERSTITIAL LUNG DISEASE [None]
  - CONCOMITANT DISEASE AGGRAVATED [None]
  - CARDIAC FAILURE [None]
